FAERS Safety Report 10256715 (Version 1)
Quarter: 2014Q2

REPORT INFORMATION
  Report Type: Report from Study
  Country: PT (occurrence: PT)
  Receive Date: 20140624
  Receipt Date: 20140624
  Transmission Date: 20141212
  Serious: Yes (Hospitalization)
  Sender: FDA-Public Use
  Company Number: PT-JNJFOC-20140205960

PATIENT
  Age: 81 Year
  Sex: Female
  Weight: 81.18 kg

DRUGS (6)
  1. XARELTO [Suspect]
     Indication: ATRIAL FIBRILLATION
     Route: 048
     Dates: start: 20130918, end: 2013
  2. XARELTO [Suspect]
     Indication: CEREBROVASCULAR ACCIDENT PROPHYLAXIS
     Route: 048
     Dates: start: 20130918, end: 2013
  3. METOPROLOL [Concomitant]
     Route: 065
  4. FUROSEMIDE [Concomitant]
     Route: 065
  5. DIGOXIN [Concomitant]
     Route: 065
  6. AMIODARONE [Concomitant]
     Route: 065

REACTIONS (1)
  - Peripheral embolism [Recovered/Resolved]
